FAERS Safety Report 12826448 (Version 1)
Quarter: 2016Q4

REPORT INFORMATION
  Report Type: Spontaneous
  Country: US (occurrence: US)
  Receive Date: 20161006
  Receipt Date: 20161006
  Transmission Date: 20170207
  Serious: No
  Sender: FDA-Public Use
  Company Number: US-JAZZ-2016-US-012858

PATIENT
  Age: 41 Year
  Sex: Male

DRUGS (19)
  1. JANUVIA [Concomitant]
     Active Substance: SITAGLIPTIN PHOSPHATE
  2. MULTIVITAMINS [Concomitant]
     Active Substance: VITAMINS
  3. WELLBUTRIN [Concomitant]
     Active Substance: BUPROPION HYDROCHLORIDE
  4. PROVIGIL [Concomitant]
     Active Substance: MODAFINIL
  5. SPIRONOLACTONE. [Concomitant]
     Active Substance: SPIRONOLACTONE
  6. DIGOXIN. [Concomitant]
     Active Substance: DIGOXIN
  7. SIMVASTATIN. [Concomitant]
     Active Substance: SIMVASTATIN
  8. SIMVASTATIN. [Concomitant]
     Active Substance: SIMVASTATIN
  9. TYLENOL ARTHRITIS PAIN [Concomitant]
     Active Substance: ACETAMINOPHEN
  10. VENLAFAXINE HCL [Concomitant]
     Active Substance: VENLAFAXINE HYDROCHLORIDE
  11. PRAMIPEXOLE. [Concomitant]
     Active Substance: PRAMIPEXOLE
  12. CARVEDILOL. [Concomitant]
     Active Substance: CARVEDILOL
  13. LISINOPRIL. [Concomitant]
     Active Substance: LISINOPRIL
  14. ELIQUIS [Concomitant]
     Active Substance: APIXABAN
  15. LANTUS [Concomitant]
     Active Substance: INSULIN GLARGINE
  16. XYREM [Suspect]
     Active Substance: SODIUM OXYBATE
     Indication: NARCOLEPSY
     Dosage: 3 G, BID
     Route: 048
     Dates: start: 20160706
  17. XYREM [Suspect]
     Active Substance: SODIUM OXYBATE
     Indication: CATAPLEXY
  18. HUMALOG [Concomitant]
     Active Substance: INSULIN LISPRO
  19. FUROSEMIDE. [Concomitant]
     Active Substance: FUROSEMIDE

REACTIONS (1)
  - Product preparation error [Unknown]

NARRATIVE: CASE EVENT DATE: 201607
